FAERS Safety Report 9821610 (Version 3)
Quarter: 2014Q1

REPORT INFORMATION
  Report Type: Spontaneous
  Country: US (occurrence: US)
  Receive Date: 20140116
  Receipt Date: 20140319
  Transmission Date: 20141002
  Serious: No
  Sender: FDA-Public Use
  Company Number: US-BIOGENIDEC-2014BI000044

PATIENT
  Age: 54 Year
  Sex: Female
  Weight: 89 kg

DRUGS (18)
  1. TECFIDERA [Suspect]
     Indication: MULTIPLE SCLEROSIS
     Dates: start: 20131210
  2. TECFIDERA [Suspect]
     Indication: MULTIPLE SCLEROSIS
     Route: 048
     Dates: start: 20131212, end: 20131218
  3. TECFIDERA [Suspect]
     Indication: MULTIPLE SCLEROSIS
     Route: 048
     Dates: start: 20131212
  4. TECFIDERA [Suspect]
     Indication: MULTIPLE SCLEROSIS
     Route: 048
     Dates: start: 20131219
  5. TECFIDERA [Suspect]
     Indication: MULTIPLE SCLEROSIS
     Route: 048
     Dates: end: 20131226
  6. TECFIDERA [Suspect]
     Indication: MULTIPLE SCLEROSIS
     Route: 048
     Dates: start: 20131220
  7. TECFIDERA [Suspect]
     Indication: MULTIPLE SCLEROSIS
     Route: 048
     Dates: start: 20131230
  8. LIPITOR [Concomitant]
  9. LYRICA [Concomitant]
  10. FLONASE [Concomitant]
  11. CALCIUM [Concomitant]
  12. ACETYL L-CARNITINE [Concomitant]
  13. PV VITAMIN D [Concomitant]
  14. FLUTICASONE PROPIONATE [Concomitant]
  15. MELOXICAM [Concomitant]
  16. ZYRTEC [Concomitant]
  17. TURMERIC [Concomitant]
  18. CVS VITAMIN D [Concomitant]

REACTIONS (8)
  - Feeling jittery [Unknown]
  - Tremor [Unknown]
  - Gastric disorder [Unknown]
  - Urticaria [Unknown]
  - Abdominal pain upper [Not Recovered/Not Resolved]
  - Nausea [Not Recovered/Not Resolved]
  - Vomiting [Recovered/Resolved]
  - Flushing [Not Recovered/Not Resolved]
